FAERS Safety Report 19961258 (Version 1)
Quarter: 2021Q4

REPORT INFORMATION
  Report Type: Spontaneous
  Country: US (occurrence: US)
  Receive Date: 20211017
  Receipt Date: 20211017
  Transmission Date: 20220303
  Serious: No
  Sender: FDA-Public Use
  Company Number: US-ORGANON-O2109USA002455

PATIENT
  Sex: Male
  Weight: 69.2 kg

DRUGS (10)
  1. LOSARTAN POTASSIUM [Suspect]
     Active Substance: LOSARTAN POTASSIUM
     Indication: Product used for unknown indication
     Route: 048
  2. LOSARTAN POTASSIUM [Suspect]
     Active Substance: LOSARTAN POTASSIUM
     Dosage: 50 MILLIGRAM
     Route: 048
     Dates: start: 2021
  3. REMODULIN [Concomitant]
     Active Substance: TREPROSTINIL
     Indication: Pulmonary arterial hypertension
     Dosage: UNK
     Route: 058
     Dates: start: 20210720
  4. REMODULIN [Concomitant]
     Active Substance: TREPROSTINIL
     Dosage: 0.002 MICROGRAM PER KILOGRAM
     Route: 058
     Dates: start: 2021
  5. REMODULIN [Concomitant]
     Active Substance: TREPROSTINIL
     Dosage: 0.013 MICROGRAM PER KILOGRAM
     Route: 058
     Dates: start: 2021
  6. REMODULIN [Concomitant]
     Active Substance: TREPROSTINIL
     Dosage: 0.002 MICROGRAM PER KILOGRAM
     Route: 058
     Dates: start: 2021
  7. REMODULIN [Concomitant]
     Active Substance: TREPROSTINIL
     Dosage: 0.002 MICROGRAM PER KILOGRAM
     Route: 058
     Dates: start: 2021
  8. ADEMPAS [Concomitant]
     Active Substance: RIOCIGUAT
     Dosage: UNK
  9. UPTRAVI [Concomitant]
     Active Substance: SELEXIPAG
     Dosage: UNK
  10. AMBRISENTAN [Concomitant]
     Active Substance: AMBRISENTAN
     Dosage: UNK

REACTIONS (2)
  - Hypotension [Recovered/Resolved]
  - Dizziness [Recovered/Resolved]

NARRATIVE: CASE EVENT DATE: 20210101
